FAERS Safety Report 6492858-X (Version None)
Quarter: 2009Q4

REPORT INFORMATION
  Report Type: 
  Country: None (occurrence: None)
  Receive Date: 20091211
  Receipt Date: 20091211
  Transmission Date: 20100525
  Serious: Yes (Other)
  Sender: FDA-Public Use
  Company Number: None

PATIENT
  Sex: Male

DRUGS (1)
  1. NAFCILLIN [Suspect]
     Indication: OSTEOMYELITIS
     Dosage: 2 GRAMS EVERY 4 HOURS IV
     Route: 042
     Dates: start: 20091117, end: 20091206

REACTIONS (2)
  - OEDEMA PERIPHERAL [None]
  - SERUM SICKNESS [None]
